FAERS Safety Report 6757130-9 (Version None)
Quarter: 2010Q2

REPORT INFORMATION
  Report Type: 
  Country: None (occurrence: None)
  Receive Date: 20100605
  Receipt Date: 20100526
  Transmission Date: 20101027
  Serious: Yes (Hospitalization, Other)
  Sender: FDA-Public Use
  Company Number: US-ROCHE-588750

PATIENT
  Sex: Female

DRUGS (7)
  1. PEGINTERFERON ALFA-2A [Suspect]
     Indication: HEPATITIS C
     Dosage: PRE FILLED SYRINGE
     Route: 058
     Dates: start: 20080919
  2. RIBAVIRIN [Suspect]
     Indication: HEPATITIS C
     Route: 048
  3. RIBAVIRIN [Suspect]
     Route: 048
  4. RIBASPHERE [Suspect]
     Indication: HEPATITIS C
     Route: 065
     Dates: start: 20080919
  5. SPIRONOLACTONE [Concomitant]
     Indication: PORTAL HYPERTENSION
  6. INDERAL [Concomitant]
     Indication: PORTAL HYPERTENSION
  7. LASIX [Concomitant]
     Indication: PORTAL HYPERTENSION

REACTIONS (9)
  - ALOPECIA [None]
  - ANAEMIA [None]
  - BLOOD PRESSURE DECREASED [None]
  - COMA [None]
  - FATIGUE [None]
  - HAEMATEMESIS [None]
  - HEADACHE [None]
  - VARICES OESOPHAGEAL [None]
  - WEIGHT INCREASED [None]
